FAERS Safety Report 7717948-2 (Version None)
Quarter: 2011Q3

REPORT INFORMATION
  Report Type: 
  Country: None (occurrence: None)
  Receive Date: 20110830
  Receipt Date: 20110817
  Transmission Date: 20111222
  Serious: Yes (Hospitalization)
  Sender: FDA-Public Use
  Company Number: TW-SANOFI-AVENTIS-2011SA054619

PATIENT
  Age: 93 Day

DRUGS (2)
  1. FUROSEMIDE [Suspect]
     Indication: CHRONIC RESPIRATORY DISEASE
     Route: 065
  2. DEXAMETHASONE [Suspect]
     Indication: CHRONIC RESPIRATORY DISEASE
     Route: 065

REACTIONS (1)
  - NEPHROLITHIASIS [None]
